FAERS Safety Report 7945601-9 (Version None)
Quarter: 2011Q4

REPORT INFORMATION
  Report Type: 
  Country: None (occurrence: None)
  Receive Date: 20111122
  Receipt Date: 20111114
  Transmission Date: 20120403
  Serious: Yes (Hospitalization, Other)
  Sender: FDA-Public Use
  Company Number: 2011SP053785

PATIENT
  Age: 29 Year
  Sex: Female
  Weight: 80 kg

DRUGS (1)
  1. IMPLANON [Suspect]
     Indication: CONTRACEPTION
     Dosage: SC
     Route: 058
     Dates: start: 20110827

REACTIONS (3)
  - MATERNAL EXPOSURE DURING PREGNANCY [None]
  - PREGNANCY WITH IMPLANT CONTRACEPTIVE [None]
  - ABORTION SPONTANEOUS [None]
